FAERS Safety Report 7640216-4 (Version None)
Quarter: 2011Q3

REPORT INFORMATION
  Report Type: 
  Country: None (occurrence: None)
  Receive Date: 20110728
  Receipt Date: 20110725
  Transmission Date: 20111222
  Serious: Yes (Life-Threatening, Hospitalization)
  Sender: FDA-Public Use
  Company Number: JP-BAYER-2011-055661

PATIENT
  Age: 76 Year
  Sex: Male
  Weight: 54 kg

DRUGS (13)
  1. FLECAINIDE ACETATE [Interacting]
     Dosage: UNK
     Route: 048
     Dates: start: 20100208
  2. DILTIAZEM HYDROCHLORIDE [Interacting]
     Dosage: 200 MG, UNK
     Route: 048
     Dates: start: 20100208
  3. GARENOXACIN MESYLATE [Concomitant]
     Dosage: DAILY DOSE 200 MG
     Route: 048
  4. FLECAINIDE ACETATE [Interacting]
     Dosage: 200 MG, UNK
     Route: 048
     Dates: end: 20100206
  5. OMEPRAZOLE [Concomitant]
     Dosage: DAILY DOSE 10 MG
     Route: 048
  6. ASPIRIN [Concomitant]
     Dosage: DAILY DOSE 100 MG
     Route: 048
  7. CIPRALAN [Interacting]
     Dosage: 200 MG, UNK
     Route: 048
     Dates: start: 20100208
  8. ALBUTEROL SULFATE [Concomitant]
     Indication: ASTHMA
     Dosage: UNK
     Route: 055
     Dates: start: 20100211
  9. ADALAT [Suspect]
     Indication: HYPERTENSION
     Dosage: DAILY DOSE 40 MG
     Route: 048
     Dates: start: 20060101, end: 20100206
  10. DAIO-KANZO-TO [Concomitant]
     Dosage: DAILY DOSE 7.5 G
     Route: 048
  11. GASMOTIN [Concomitant]
     Dosage: DAILY DOSE 15 MG
     Route: 048
  12. ADALAT [Suspect]
     Dosage: 40 MG, UNK
     Route: 048
     Dates: start: 20100208
  13. OXYGEN [Concomitant]
     Indication: PNEUMONIA
     Dosage: UNK
     Route: 055
     Dates: start: 20100212

REACTIONS (4)
  - CARDIAC ARREST [None]
  - RENAL IMPAIRMENT [None]
  - BRADYCARDIA [None]
  - HYPOTENSION [None]
